FAERS Safety Report 6138066-3 (Version None)
Quarter: 2009Q1

REPORT INFORMATION
  Report Type: 
  Country: None (occurrence: None)
  Receive Date: 20090327
  Receipt Date: 20090327
  Transmission Date: 20090719
  Serious: Yes (Other)
  Sender: FDA-Public Use
  Company Number: None

PATIENT
  Age: 57 Year
  Sex: Male
  Weight: 80 kg

DRUGS (2)
  1. ALDARA [Suspect]
     Indication: SKIN CANCER
     Dosage: ONE SPOT PER DAY 5 OUT OF 7 DAYS TOP
     Route: 061
     Dates: start: 20080312, end: 20080415
  2. ALDARA [Suspect]
     Indication: SKIN CANCER
     Dosage: ONE SPOT PER DAY 5 OUT OF 7 DAYS TOP
     Route: 061
     Dates: start: 20080711, end: 20080812

REACTIONS (6)
  - EAR INFECTION FUNGAL [None]
  - HEADACHE [None]
  - LOCAL SWELLING [None]
  - METASTASES TO LYMPH NODES [None]
  - OROPHARYNGEAL PAIN [None]
  - SKIN DISCOLOURATION [None]
